FAERS Safety Report 7057610-5 (Version None)
Quarter: 2010Q4

REPORT INFORMATION
  Report Type: 
  Country: None (occurrence: None)
  Receive Date: 20101022
  Receipt Date: 20101013
  Transmission Date: 20110411
  Serious: Yes (Hospitalization)
  Sender: FDA-Public Use
  Company Number: NL-ROCHE-733724

PATIENT

DRUGS (5)
  1. CAPECITABINE [Suspect]
     Dosage: LAST DOSE PRIOR TO SAE ON 12 SEPTEMBER 2010.
     Route: 065
     Dates: start: 20100830
  2. COLCHICINE [Suspect]
     Indication: PRODUCT USED FOR UNKNOWN INDICATION
     Route: 048
     Dates: start: 20100921, end: 20100922
  3. OMEPRAZOLE [Concomitant]
     Route: 048
  4. FERROFUMARAAT [Concomitant]
     Route: 048
     Dates: start: 20100811
  5. RANITIDINE [Concomitant]
     Route: 048
     Dates: start: 20100811

REACTIONS (2)
  - DRUG HYPERSENSITIVITY [None]
  - GOUT [None]
